FAERS Safety Report 9335349 (Version 2)
Quarter: 2013Q3

REPORT INFORMATION
  Report Type: Report from Study
  Country: US (occurrence: US)
  Receive Date: 20130606
  Receipt Date: 20130705
  Transmission Date: 20140515
  Serious: Yes (Hospitalization)
  Sender: FDA-Public Use
  Company Number: US-US-EMD SERONO, INC.-7215164

PATIENT
  Age: 50 Year
  Sex: Female

DRUGS (5)
  1. REBIF [Suspect]
     Indication: MULTIPLE SCLEROSIS
     Route: 058
     Dates: start: 20120819
  2. REBIF [Suspect]
     Route: 058
  3. REBIF [Suspect]
     Route: 058
     Dates: end: 20130422
  4. ALBUTEROL                          /00139501/ [Concomitant]
     Indication: ASTHMA
  5. SINGULAIR                          /01362601/ [Concomitant]
     Indication: ASTHMA

REACTIONS (4)
  - Asthma [Recovered/Resolved]
  - Band sensation [Unknown]
  - Pyrexia [Unknown]
  - Chills [Unknown]
